FAERS Safety Report 7942724-5 (Version None)
Quarter: 2011Q4

REPORT INFORMATION
  Report Type: 
  Country: None (occurrence: None)
  Receive Date: 20111128
  Receipt Date: 20111122
  Transmission Date: 20120403
  Serious: Yes (Hospitalization, Other)
  Sender: FDA-Public Use
  Company Number: DK-SANOFI-AVENTIS-2011SA063791

PATIENT
  Age: 96 Year
  Sex: Female

DRUGS (6)
  1. SOLOSTAR [Suspect]
     Dates: start: 20110801, end: 20110901
  2. LANTUS [Suspect]
     Indication: TYPE 1 DIABETES MELLITUS
     Route: 058
     Dates: start: 20110801, end: 20110901
  3. NOVORAPID [Concomitant]
     Indication: TYPE 1 DIABETES MELLITUS
     Route: 058
     Dates: start: 20090101
  4. CHOLESTEROL- AND TRIGLYCERIDE REDUCERS [Concomitant]
     Route: 065
  5. SOLOSTAR [Suspect]
     Indication: TYPE 1 DIABETES MELLITUS
     Dates: start: 20090101
  6. LANTUS [Suspect]
     Route: 058
     Dates: start: 20090101

REACTIONS (5)
  - CYSTITIS [None]
  - PNEUMONITIS [None]
  - HYPERGLYCAEMIA [None]
  - MALAISE [None]
  - KETOSIS [None]
